FAERS Safety Report 6615957-8 (Version None)
Quarter: 2010Q1

REPORT INFORMATION
  Report Type: 
  Country: None (occurrence: None)
  Receive Date: 20100305
  Receipt Date: 20100301
  Transmission Date: 20100710
  Serious: Yes (Hospitalization)
  Sender: FDA-Public Use
  Company Number: A0847367A

PATIENT
  Age: 45 Year
  Sex: Female

DRUGS (12)
  1. AVANDIA [Suspect]
     Route: 048
  2. TOPROL-XL [Concomitant]
  3. ESTRADIOL [Concomitant]
  4. LITHOBID [Concomitant]
  5. POTASSIUM [Concomitant]
  6. BENTYL [Concomitant]
  7. JANUVIA [Concomitant]
  8. SYNTHROID [Concomitant]
  9. XANAX [Concomitant]
  10. FUROSEMIDE [Concomitant]
  11. UNSPECIFIED MEDICATION [Concomitant]
  12. LANTUS [Concomitant]

REACTIONS (1)
  - CEREBROVASCULAR ACCIDENT [None]
